FAERS Safety Report 6973774-3 (Version None)
Quarter: 2010Q3

REPORT INFORMATION
  Report Type: 
  Country: None (occurrence: None)
  Receive Date: 20100909
  Receipt Date: 20100901
  Transmission Date: 20110219
  Serious: Yes (Hospitalization)
  Sender: FDA-Public Use
  Company Number: A0850026A

PATIENT
  Age: 43 Year
  Sex: Male
  Weight: 127.3 kg

DRUGS (10)
  1. AVANDIA [Suspect]
     Indication: DIABETES MELLITUS
     Dosage: 4MG TWICE PER DAY
     Route: 048
     Dates: start: 19990501, end: 20070501
  2. EZETIMIBE [Concomitant]
  3. METOPROLOL TARTRATE [Concomitant]
  4. WELLBUTRIN SR [Concomitant]
  5. COLCHICINE [Concomitant]
  6. LISINOPRIL [Concomitant]
  7. ALLOPURINOL [Concomitant]
  8. METHADONE [Concomitant]
  9. VALIUM [Concomitant]
  10. PERCOCET [Concomitant]

REACTIONS (2)
  - CORONARY ARTERY DISEASE [None]
  - MYOCARDIAL INFARCTION [None]
